FAERS Safety Report 24121075 (Version 1)
Quarter: 2024Q3

REPORT INFORMATION
  Report Type: Spontaneous
  Country: US (occurrence: US)
  Receive Date: 20240722
  Receipt Date: 20240722
  Transmission Date: 20241016
  Serious: No
  Sender: LGM PHARMA
  Company Number: US-LGM Pharma Solutions, LLC-2159346

PATIENT
  Sex: Male

DRUGS (1)
  1. CHENODAL [Suspect]
     Active Substance: CHENODIOL
     Route: 048

REACTIONS (1)
  - Posture abnormal [Unknown]
